FAERS Safety Report 16392887 (Version 1)
Quarter: 2019Q2

REPORT INFORMATION
  Report Type: Spontaneous
  Country: CA (occurrence: CA)
  Receive Date: 20190605
  Receipt Date: 20190605
  Transmission Date: 20190711
  Serious: Yes (Other)
  Sender: FDA-Public Use
  Company Number: CA-ORION CORPORATION ORION PHARMA-TREX2019-1675

PATIENT
  Sex: Female

DRUGS (2)
  1. ORENCIA [Concomitant]
     Active Substance: ABATACEPT
     Route: 065
  2. METHOTREXATE (TRADE NAME UNKNOWN) [Suspect]
     Active Substance: METHOTREXATE
     Indication: PRODUCT USED FOR UNKNOWN INDICATION
     Route: 065

REACTIONS (6)
  - Diarrhoea [Not Recovered/Not Resolved]
  - Ocular neoplasm [Not Recovered/Not Resolved]
  - Nausea [Not Recovered/Not Resolved]
  - Skin cancer [Unknown]
  - Urinary tract infection [Unknown]
  - Pseudomonas infection [Unknown]

NARRATIVE: CASE EVENT DATE: 2018
